FAERS Safety Report 25543633 (Version 1)
Quarter: 2025Q3

REPORT INFORMATION
  Report Type: Spontaneous
  Country: EU (occurrence: EU)
  Receive Date: 20250711
  Receipt Date: 20250711
  Transmission Date: 20251021
  Serious: Yes (Death)
  Sender: RANBAXY
  Company Number: EU-SUN PHARMACEUTICAL INDUSTRIES LTD-2025RR-516675

PATIENT
  Age: 66 Year
  Sex: Female
  Weight: 47 kg

DRUGS (5)
  1. AMLODIPINE [Suspect]
     Active Substance: AMLODIPINE BESYLATE
     Indication: Poisoning deliberate
     Route: 048
     Dates: start: 20250204, end: 20250204
  2. RAMIPRIL [Suspect]
     Active Substance: RAMIPRIL
     Indication: Poisoning deliberate
     Route: 048
     Dates: start: 20250204, end: 20250204
  3. TRIMEPRAZINE TARTRATE [Suspect]
     Active Substance: TRIMEPRAZINE TARTRATE
     Indication: Poisoning deliberate
     Route: 048
     Dates: start: 20250204, end: 20250204
  4. LORAZEPAM [Suspect]
     Active Substance: LORAZEPAM
     Indication: Poisoning deliberate
     Route: 048
     Dates: start: 20250204, end: 20250204
  5. CLOMIPRAMINE HYDROCHLORIDE [Suspect]
     Active Substance: CLOMIPRAMINE HYDROCHLORIDE
     Indication: Poisoning deliberate
     Route: 048
     Dates: start: 20250204, end: 20250204

REACTIONS (2)
  - Circulatory collapse [Fatal]
  - Poisoning deliberate [Fatal]
